FAERS Safety Report 7340886-4 (Version None)
Quarter: 2011Q1

REPORT INFORMATION
  Report Type: 
  Country: None (occurrence: None)
  Receive Date: 20110228
  Receipt Date: 20110214
  Transmission Date: 20110831
  Serious: Yes (Other)
  Sender: FDA-Public Use
  Company Number: 2011000723

PATIENT
  Age: 85 Year
  Sex: Female
  Weight: 49.4421 kg

DRUGS (12)
  1. POTASSIUM CHLORIDE [Concomitant]
  2. CARDIZEM [Concomitant]
  3. BONIVA [Concomitant]
  4. LASIX [Concomitant]
  5. PRECOSE [Concomitant]
  6. AMARYL [Concomitant]
  7. ALLOPURINOL [Concomitant]
  8. ENALAPRIL MALEATE [Concomitant]
  9. AYNTHROID (LEVOTHYROXINE SODIUM) [Concomitant]
  10. TARCEVA [Suspect]
     Indication: LUNG ADENOCARCINOMA
     Dosage: (150 MG,DAILY), ORAL
     Route: 048
     Dates: start: 20091202, end: 20101014
  11. TARCEVA [Suspect]
     Indication: LUNG NEOPLASM MALIGNANT
     Dosage: (150 MG,DAILY), ORAL
     Route: 048
     Dates: start: 20091202, end: 20101014
  12. CALTRATE (CALCIUM CARBONATE) [Concomitant]

REACTIONS (8)
  - WEIGHT DECREASED [None]
  - BACK INJURY [None]
  - ELECTROCARDIOGRAM QT PROLONGED [None]
  - FALL [None]
  - ALOPECIA [None]
  - RASH MACULO-PAPULAR [None]
  - COMPRESSION FRACTURE [None]
  - DECREASED APPETITE [None]
